FAERS Safety Report 9159558 (Version 1)
Quarter: 2013Q1

REPORT INFORMATION
  Report Type: Spontaneous
  Country: US (occurrence: None)
  Receive Date: 20130312
  Receipt Date: 20130312
  Transmission Date: 20140127
  Serious: No
  Sender: FDA-Public Use
  Company Number: None

PATIENT
  Sex: Female

DRUGS (1)
  1. ENBREL SURECLICK 50MG/ML AMGEN [Suspect]
     Indication: RHEUMATOID ARTHRITIS
     Dates: start: 20111118, end: 20130116

REACTIONS (3)
  - Local swelling [None]
  - Cardiac disorder [None]
  - Infection [None]
